FAERS Safety Report 24925845 (Version 1)
Quarter: 2025Q1

REPORT INFORMATION
  Report Type: Spontaneous
  Country: US (occurrence: US)
  Receive Date: 20250205
  Receipt Date: 20250205
  Transmission Date: 20250409
  Serious: No
  Sender: ALMUS
  Company Number: US-ALM-HQ-US-2022-0873

PATIENT
  Age: 54 Year
  Sex: Female

DRUGS (1)
  1. KLISYRI [Suspect]
     Active Substance: TIRBANIBULIN
     Indication: Actinic keratosis
     Route: 061
     Dates: start: 20220427, end: 20220501

REACTIONS (1)
  - Application site erythema [Unknown]
